FAERS Safety Report 25312826 (Version 1)
Quarter: 2025Q2

REPORT INFORMATION
  Report Type: Spontaneous
  Country: US (occurrence: US)
  Receive Date: 20250514
  Receipt Date: 20250514
  Transmission Date: 20250716
  Serious: No
  Sender: PFIZER
  Company Number: US-PFIZER INC-202500098823

PATIENT
  Age: 56 Year
  Sex: Female
  Weight: 45.36 kg

DRUGS (2)
  1. HYDROCORTISONE [Suspect]
     Active Substance: HYDROCORTISONE
     Indication: Mast cell activation syndrome
     Dosage: 2.5 MG, 1X/DAY (5MG TABLET, HALF TABLET ONCE A DAY BY MOUTH)
     Route: 048
  2. ZYRTEC [Concomitant]
     Active Substance: CETIRIZINE HYDROCHLORIDE
     Dosage: UNK, 1X/DAY

REACTIONS (4)
  - Drug ineffective [Unknown]
  - Pain [Unknown]
  - Headache [Unknown]
  - Off label use [Unknown]
